FAERS Safety Report 8996488 (Version 3)
Quarter: 2014Q2

REPORT INFORMATION
  Report Type: Spontaneous
  Country: US (occurrence: US)
  Receive Date: 20130104
  Receipt Date: 20140526
  Transmission Date: 20141212
  Serious: No
  Sender: FDA-Public Use
  Company Number: US-BIOGENIDEC-2012BI065097

PATIENT
  Age: 36 Year
  Sex: Female

DRUGS (1)
  1. AVONEX [Suspect]
     Indication: MULTIPLE SCLEROSIS
     Route: 030
     Dates: start: 20070711

REACTIONS (8)
  - Anxiety [Recovered/Resolved]
  - Memory impairment [Unknown]
  - Musculoskeletal disorder [Unknown]
  - Hypertension [Unknown]
  - Weight decreased [Unknown]
  - Hypotonia [Unknown]
  - Fatigue [Unknown]
  - Multiple sclerosis relapse [Unknown]
